FAERS Safety Report 23800534 (Version 4)
Quarter: 2025Q3

REPORT INFORMATION
  Report Type: Spontaneous
  Country: JP (occurrence: JP)
  Receive Date: 20240430
  Receipt Date: 20250722
  Transmission Date: 20251021
  Serious: Yes (Other)
  Sender: PFIZER
  Company Number: JP-PFIZER INC-PV202400055451

PATIENT
  Age: 8 Decade
  Sex: Female

DRUGS (5)
  1. BESPONSA [Suspect]
     Active Substance: INOTUZUMAB OZOGAMICIN
  2. BLINCYTO [Suspect]
     Active Substance: BLINATUMOMAB
     Indication: B-cell type acute leukaemia
     Route: 042
     Dates: start: 20240122, end: 2024
  3. BLINCYTO [Suspect]
     Active Substance: BLINATUMOMAB
     Route: 042
     Dates: start: 2024, end: 2024
  4. BLINCYTO [Suspect]
     Active Substance: BLINATUMOMAB
     Route: 042
     Dates: start: 2024
  5. BLINCYTO [Suspect]
     Active Substance: BLINATUMOMAB
     Route: 042
     Dates: start: 202501

REACTIONS (9)
  - Cytokine release syndrome [Unknown]
  - Seizure [Recovering/Resolving]
  - Encephalitis [Recovering/Resolving]
  - Injection site haemorrhage [Recovering/Resolving]
  - Blood pressure increased [Recovered/Resolved]
  - Generalised oedema [Recovering/Resolving]
  - Pharyngitis [Recovering/Resolving]
  - Coronavirus test positive [Unknown]
  - Vision blurred [Recovering/Resolving]

NARRATIVE: CASE EVENT DATE: 20240125
